FAERS Safety Report 9403163 (Version 1)
Quarter: 2013Q3

REPORT INFORMATION
  Report Type: Spontaneous
  Country: US (occurrence: US)
  Receive Date: 20130716
  Receipt Date: 20130716
  Transmission Date: 20140515
  Serious: Yes (Other)
  Sender: FDA-Public Use
  Company Number: US-ASTRAZENECA-2013SE51037

PATIENT
  Age: 72 Year
  Sex: Female
  Weight: 90.7 kg

DRUGS (2)
  1. ARIMIDEX [Suspect]
     Route: 048
     Dates: start: 2013, end: 2013
  2. TAMOXIFEN [Suspect]
     Route: 065
     Dates: start: 1999, end: 2000

REACTIONS (10)
  - Dyspnoea [Unknown]
  - Endometrial cancer [Unknown]
  - Local swelling [Recovered/Resolved]
  - Carpal tunnel syndrome [Recovered/Resolved]
  - Vaginal haemorrhage [Unknown]
  - Adverse event [Unknown]
  - Hepatic enzyme abnormal [Recovered/Resolved]
  - Drug hypersensitivity [Unknown]
  - Alopecia [Unknown]
  - Hepatic enzyme increased [Recovered/Resolved]
